FAERS Safety Report 7640242-5 (Version None)
Quarter: 2011Q3

REPORT INFORMATION
  Report Type: 
  Country: None (occurrence: None)
  Receive Date: 20110728
  Receipt Date: 20080826
  Transmission Date: 20111222
  Serious: Yes (Disabling, Other)
  Sender: FDA-Public Use
  Company Number: US-BAYER-200824887NA

PATIENT
  Age: 52 Year
  Sex: Female
  Weight: 63.946 kg

DRUGS (19)
  1. OPTIMARK [Suspect]
     Indication: NUCLEAR MAGNETIC RESONANCE IMAGING
  2. OMNISCAN [Suspect]
     Indication: NUCLEAR MAGNETIC RESONANCE IMAGING
     Dosage: UNK UNK, ONCE
     Dates: start: 20041004, end: 20041004
  3. LEVOTHYROXINE SODIUM [Concomitant]
  4. PROCRIT [Concomitant]
  5. EMLA [Concomitant]
  6. ALLOPURINOL [Concomitant]
  7. COUMADIN [Concomitant]
  8. PROLIXIN [Concomitant]
  9. PROHANCE [Suspect]
     Indication: NUCLEAR MAGNETIC RESONANCE IMAGING
  10. DEPAKOTE [Concomitant]
  11. MAGNEVIST [Suspect]
     Indication: ANGIOGRAM
     Dosage: UNK UNK, ONCE
     Dates: start: 20041221, end: 20041221
  12. MULTIHANCE [Suspect]
     Indication: NUCLEAR MAGNETIC RESONANCE IMAGING
  13. MAGNEVIST [Suspect]
     Dosage: UNK
     Dates: start: 20041221
  14. PHOSLO [Concomitant]
  15. FERROUS SULFATE TAB [Concomitant]
  16. LEVOXYL [Concomitant]
  17. OMNISCAN [Suspect]
     Dosage: UNK, ONCE
     Dates: start: 20041007, end: 20041007
  18. DEPAKOTE ER [Concomitant]
  19. SENSIPAR [Concomitant]

REACTIONS (8)
  - JOINT CONTRACTURE [None]
  - NEPHROGENIC SYSTEMIC FIBROSIS [None]
  - PAIN [None]
  - EMOTIONAL DISTRESS [None]
  - INJURY [None]
  - MYOSCLEROSIS [None]
  - ANXIETY [None]
  - DEPRESSION [None]
